FAERS Safety Report 13333719 (Version 2)
Quarter: 2017Q2

REPORT INFORMATION
  Report Type: Spontaneous
  Country: US (occurrence: US)
  Receive Date: 20170313
  Receipt Date: 20170411
  Transmission Date: 20170830
  Serious: Yes (Death, Other)
  Sender: FDA-Public Use
  Company Number: US-009507513-1703USA001659

PATIENT
  Sex: Male

DRUGS (2)
  1. KEYTRUDA [Suspect]
     Active Substance: PEMBROLIZUMAB
     Indication: METASTATIC SQUAMOUS CELL CARCINOMA
     Dosage: UNK
     Dates: start: 20170116
  2. KEYTRUDA [Suspect]
     Active Substance: PEMBROLIZUMAB
     Indication: SINUS CANCER METASTATIC
     Dosage: UNK
     Dates: start: 20170206

REACTIONS (5)
  - Malignant neoplasm progression [Fatal]
  - Myopathy [Unknown]
  - Paraneoplastic syndrome [Unknown]
  - Hepatitis [Recovered/Resolved]
  - Myositis [Unknown]

NARRATIVE: CASE EVENT DATE: 2017
